FAERS Safety Report 6410587-5 (Version None)
Quarter: 2009Q4

REPORT INFORMATION
  Report Type: 
  Country: None (occurrence: None)
  Receive Date: 20091016
  Receipt Date: 20091012
  Transmission Date: 20100525
  Serious: Yes (Hospitalization)
  Sender: FDA-Public Use
  Company Number: 402545

PATIENT
  Age: 81 Year
  Sex: Male
  Weight: 73 kg

DRUGS (7)
  1. FENTANYL-100 [Suspect]
     Indication: MAINTENANCE OF ANAESTHESIA
  2. PROPOFOL [Suspect]
     Indication: INDUCTION OF ANAESTHESIA
     Dosage: 150 MG, INTRAVENOUS
     Route: 042
  3. VECURONIUM BROMIDE [Suspect]
     Indication: MAINTENANCE OF ANAESTHESIA
  4. MIVACURIUM CHLORIDE [Suspect]
     Indication: INDUCTION OF ANAESTHESIA
     Dosage: 10 MG, INTRAVENOUS
     Route: 042
  5. SEVOFLURANE [Suspect]
     Indication: GENERAL ANAESTHESIA
     Dosage: INHALATION
     Route: 055
  6. (NITROUS OXIDE) [Suspect]
     Indication: GENERAL ANAESTHESIA
     Dosage: INHALATION
     Route: 055
  7. RED BLOOD CELLS [Concomitant]

REACTIONS (2)
  - OPERATIVE HAEMORRHAGE [None]
  - TRANSIENT ISCHAEMIC ATTACK [None]
